FAERS Safety Report 12655846 (Version 5)
Quarter: 2017Q1

REPORT INFORMATION
  Report Type: Spontaneous
  Country: US (occurrence: US)
  Receive Date: 20160816
  Receipt Date: 20170105
  Transmission Date: 20170428
  Serious: Yes (Hospitalization, Other)
  Sender: FDA-Public Use
  Company Number: US-PFIZER INC-2016386631

PATIENT
  Age: 78 Year
  Sex: Female
  Weight: 82 kg

DRUGS (3)
  1. LIPITOR [Suspect]
     Active Substance: ATORVASTATIN CALCIUM
     Indication: BLOOD CHOLESTEROL INCREASED
     Dosage: 1 DF, 1X/DAY, ^TABLET, ORALLY, ONCE A DAY^
     Route: 048
  2. LIPITOR [Suspect]
     Active Substance: ATORVASTATIN CALCIUM
     Dosage: 40 MG, 1X/DAY (1 TABLET AT BED TIME)
     Dates: start: 2006, end: 20111208
  3. PROZAC [Concomitant]
     Active Substance: FLUOXETINE HYDROCHLORIDE
     Indication: DEPRESSION
     Dosage: 20 MG, 1X/DAY
     Dates: start: 1977

REACTIONS (16)
  - Hyperhidrosis [Unknown]
  - Neuropathy peripheral [Not Recovered/Not Resolved]
  - Dyskinesia [Unknown]
  - Drug hypersensitivity [Not Recovered/Not Resolved]
  - Dizziness [Unknown]
  - Multiple sclerosis [Unknown]
  - Fall [Unknown]
  - Loss of consciousness [Unknown]
  - Balance disorder [Not Recovered/Not Resolved]
  - Blood glucose abnormal [Unknown]
  - Asthenia [Unknown]
  - Syndactyly [Unknown]
  - Parkinson^s disease [Unknown]
  - Gait disturbance [Not Recovered/Not Resolved]
  - Limb discomfort [Not Recovered/Not Resolved]
  - Pain in extremity [Not Recovered/Not Resolved]

NARRATIVE: CASE EVENT DATE: 2006
